FAERS Safety Report 4884877-1 (Version None)
Quarter: 2006Q1

REPORT INFORMATION
  Report Type: 
  Country: None (occurrence: None)
  Receive Date: 20060119
  Receipt Date: 20060113
  Transmission Date: 20060701
  Serious: Yes (Death)
  Sender: FDA-Public Use
  Company Number: BE-GLAXOSMITHKLINE-B0406801A

PATIENT
  Age: 67 Year
  Sex: Male

DRUGS (6)
  1. FONDAPARINUX SODIUM [Suspect]
     Dosage: 2.5MG PER DAY
     Route: 058
     Dates: start: 20050214
  2. ASPIRIN [Concomitant]
  3. PLAVIX [Concomitant]
  4. CLEXANE [Concomitant]
  5. REOPRO [Concomitant]
  6. UNFRACTIONATED HEPARIN [Concomitant]

REACTIONS (1)
  - HAEMORRHAGIC STROKE [None]
